FAERS Safety Report 10047115 (Version 3)
Quarter: 2014Q2

REPORT INFORMATION
  Report Type: Spontaneous
  Country: JP (occurrence: None)
  Receive Date: 20140327
  Receipt Date: 20140529
  Transmission Date: 20141212
  Serious: Yes (Death, Life-Threatening, Other)
  Sender: FDA-Public Use
  Company Number: JP-015089

PATIENT
  Age: 81 Year
  Sex: Male
  Weight: 61 kg

DRUGS (5)
  1. DEGARELIX [Suspect]
     Indication: PROSTATE CANCER
     Route: 058
     Dates: start: 20131225, end: 20131225
  2. BESACOLIN [Concomitant]
  3. FLIVAS [Concomitant]
  4. ESTRACYT [Concomitant]
  5. PREDONINE [Concomitant]

REACTIONS (2)
  - Interstitial lung disease [None]
  - Blood lactate dehydrogenase increased [None]
